FAERS Safety Report 7576609-3 (Version None)
Quarter: 2011Q2

REPORT INFORMATION
  Report Type: 
  Country: None (occurrence: None)
  Receive Date: 20110628
  Receipt Date: 20110614
  Transmission Date: 20111010
  Serious: Yes (Other)
  Sender: FDA-Public Use
  Company Number: CO-JNJFOC-20110608165

PATIENT
  Sex: Female

DRUGS (2)
  1. REMICADE [Suspect]
     Indication: PRODUCT USED FOR UNKNOWN INDICATION
     Route: 042
     Dates: start: 20110401
  2. REMICADE [Suspect]
     Route: 042
     Dates: start: 20110119

REACTIONS (5)
  - MALAISE [None]
  - RASH [None]
  - PAIN [None]
  - HEADACHE [None]
  - INFUSION RELATED REACTION [None]
